FAERS Safety Report 10509563 (Version 2)
Quarter: 2015Q3

REPORT INFORMATION
  Report Type: Spontaneous
  Country: US (occurrence: US)
  Receive Date: 20141010
  Receipt Date: 20150918
  Transmission Date: 20151125
  Serious: Yes (Disabling)
  Sender: FDA-Public Use
  Company Number: US-ROCHE-1472060

PATIENT
  Age: 60 Year
  Sex: Female

DRUGS (1)
  1. XOLAIR [Suspect]
     Active Substance: OMALIZUMAB
     Indication: ASTHMA
     Route: 058
     Dates: start: 20130307, end: 20141007

REACTIONS (5)
  - Headache [Unknown]
  - Transient ischaemic attack [Recovered/Resolved]
  - Slow speech [Unknown]
  - Vision blurred [Unknown]
  - Aphasia [Unknown]

NARRATIVE: CASE EVENT DATE: 20140923
